FAERS Safety Report 13044363 (Version 1)
Quarter: 2016Q4

REPORT INFORMATION
  Report Type: Spontaneous
  Country: US (occurrence: US)
  Receive Date: 20161220
  Receipt Date: 20161220
  Transmission Date: 20170207
  Serious: No
  Sender: FDA-Public Use
  Company Number: US-ROCHE-1041183

PATIENT
  Age: 68 Year
  Sex: Male
  Weight: 65.83 kg

DRUGS (3)
  1. ZELBORAF [Suspect]
     Active Substance: VEMURAFENIB
     Route: 048
     Dates: start: 201207
  2. ZELBORAF [Suspect]
     Active Substance: VEMURAFENIB
     Indication: METASTATIC MALIGNANT MELANOMA
     Route: 048
     Dates: start: 201201, end: 201207
  3. ADVIL [Concomitant]
     Active Substance: IBUPROFEN
     Indication: HEADACHE
     Route: 048

REACTIONS (16)
  - Fatigue [Unknown]
  - Dysgeusia [Unknown]
  - Pyrexia [Not Recovered/Not Resolved]
  - Swelling [Unknown]
  - Peripheral swelling [Not Recovered/Not Resolved]
  - Sunburn [Not Recovered/Not Resolved]
  - Arthralgia [Unknown]
  - Blood bilirubin increased [Recovering/Resolving]
  - Chills [Recovered/Resolved]
  - Skin mass [Unknown]
  - Skin papilloma [Unknown]
  - Rash [Recovered/Resolved]
  - Headache [Recovering/Resolving]
  - Arthralgia [Not Recovered/Not Resolved]
  - Photosensitivity reaction [Recovering/Resolving]
  - Hepatic enzyme increased [Unknown]

NARRATIVE: CASE EVENT DATE: 201201
